FAERS Safety Report 4552082-4 (Version None)
Quarter: 2005Q1

REPORT INFORMATION
  Report Type: 
  Country: None (occurrence: None)
  Receive Date: 20050113
  Receipt Date: 20050110
  Transmission Date: 20050727
  Serious: Yes (Life-Threatening, Disabling)
  Sender: FDA-Public Use
  Company Number: US-MERCK-0501USA00871

PATIENT
  Age: 45 Year
  Sex: Female

DRUGS (3)
  1. VYTORIN [Suspect]
     Indication: BLOOD CHOLESTEROL INCREASED
     Route: 048
     Dates: start: 20041227, end: 20050101
  2. SYNTHROID [Concomitant]
     Route: 065
  3. AMOXICILLIN [Concomitant]
     Route: 065

REACTIONS (3)
  - BACK PAIN [None]
  - SKIN BURNING SENSATION [None]
  - SWOLLEN TONGUE [None]
